FAERS Safety Report 5603970-9 (Version None)
Quarter: 2008Q1

REPORT INFORMATION
  Report Type: 
  Country: None (occurrence: None)
  Receive Date: 20080124
  Receipt Date: 20080124
  Transmission Date: 20080703
  Serious: No
  Sender: FDA-Public Use
  Company Number: None

PATIENT
  Sex: Male

DRUGS (1)
  1. ADENOSCAN [Suspect]
     Dosage: 51MG 1X IV
     Route: 042
     Dates: start: 20080118

REACTIONS (2)
  - EXTRAVASATION [None]
  - INFUSION RELATED REACTION [None]
